FAERS Safety Report 25748839 (Version 2)
Quarter: 2025Q4

REPORT INFORMATION
  Report Type: Spontaneous
  Country: US (occurrence: US)
  Receive Date: 20250902
  Receipt Date: 20251117
  Transmission Date: 20260117
  Serious: No
  Sender: SANOFI AVENTIS
  Company Number: US-SA-2025SA261139

PATIENT
  Age: 65 Year
  Sex: Male

DRUGS (1)
  1. DUPIXENT [Suspect]
     Active Substance: DUPILUMAB
     Indication: Eosinophilic oesophagitis
     Dosage: 300 MG, QW
     Route: 058
     Dates: start: 202507

REACTIONS (5)
  - Gastrooesophageal reflux disease [Unknown]
  - Condition aggravated [Unknown]
  - Candida infection [Not Recovered/Not Resolved]
  - Dysphonia [Unknown]
  - Injection site mass [Unknown]

NARRATIVE: CASE EVENT DATE: 20250101
